FAERS Safety Report 23859882 (Version 1)
Quarter: 2024Q2

REPORT INFORMATION
  Report Type: Other
  Country: CL (occurrence: CL)
  Receive Date: 20240515
  Receipt Date: 20240515
  Transmission Date: 20240716
  Serious: Yes (Other)
  Sender: FDA-Public Use
  Company Number: CL-B.Braun Medical Inc.-2157050

PATIENT
  Age: 14 Year
  Sex: Female

DRUGS (7)
  1. DEXTROSE\MAGNESIUM SULFATE [Suspect]
     Active Substance: DEXTROSE\MAGNESIUM SULFATE
     Indication: Premature labour
  2. CEFAZOLIN [Concomitant]
     Active Substance: CEFAZOLIN
  3. HYDROCORTISONE [Concomitant]
     Active Substance: HYDROCORTISONE
  4. NOREPINEPHRINE [Concomitant]
     Active Substance: NOREPINEPHRINE\NOREPINEPHRINE BITARTRATE
  5. MEROPENEM [Concomitant]
     Active Substance: MEROPENEM
  6. NIFEDIPINE [Concomitant]
     Active Substance: NIFEDIPINE
  7. BETAMETHASONE [Concomitant]
     Active Substance: BETAMETHASONE\BETAMETHASONE DIPROPIONATE

REACTIONS (4)
  - Hypotension [Unknown]
  - Maternal exposure during pregnancy [Unknown]
  - Drug ineffective for unapproved indication [Unknown]
  - Anuria [Unknown]
